FAERS Safety Report 9719796 (Version 3)
Quarter: 2014Q1

REPORT INFORMATION
  Report Type: Report from Study
  Country: FR (occurrence: FR)
  Receive Date: 20131128
  Receipt Date: 20140306
  Transmission Date: 20141002
  Serious: Yes (Hospitalization)
  Sender: FDA-Public Use
  Company Number: FR-CELGENEUS-056-21880-13113355

PATIENT
  Age: 62 Year
  Sex: Male
  Weight: 98.5 kg

DRUGS (10)
  1. REVLIMID [Suspect]
     Dosage: 20 MILLIGRAM
     Route: 048
     Dates: end: 20140115
  2. RITUXIMAB [Suspect]
     Indication: LYMPHOMA
     Route: 065
     Dates: start: 20140108
  3. MANIDIPINE [Concomitant]
     Indication: HYPERTENSION
     Route: 065
  4. PENTACARINAT [Concomitant]
     Indication: PNEUMOCYSTIS JIROVECII INFECTION
     Route: 065
     Dates: start: 20120205
  5. VALACICLOVIR [Concomitant]
     Indication: INFECTION PROPHYLAXIS
     Route: 065
     Dates: start: 20130108
  6. CYCLOPHOSPHAMIDE [Concomitant]
     Indication: LYMPHOMA
     Route: 065
  7. VINCRISTINE [Concomitant]
     Indication: LYMPHOMA
     Route: 065
  8. PREDNISOLONE [Concomitant]
     Indication: LYMPHOMA
     Route: 065
  9. ADRIAMYCIN [Concomitant]
     Indication: LYMPHOMA
     Route: 065
  10. REVLIMID [Suspect]
     Indication: NON-HODGKIN^S LYMPHOMA
     Dosage: 20 MILLIGRAM
     Route: 048
     Dates: start: 20130108, end: 20131113

REACTIONS (2)
  - Skin necrosis [Recovered/Resolved with Sequelae]
  - Procedural complication [Not Recovered/Not Resolved]
